FAERS Safety Report 9628932 (Version 2)
Quarter: 2013Q4

REPORT INFORMATION
  Report Type: Report from Study
  Country: IT (occurrence: IT)
  Receive Date: 20131017
  Receipt Date: 20131017
  Transmission Date: 20140711
  Serious: Yes (Hospitalization)
  Sender: FDA-Public Use
  Company Number: PHHO2011IT020231

PATIENT
  Sex: 0

DRUGS (12)
  1. PANOBINOSTAT HYDRATE [Suspect]
     Indication: PLASMA CELL MYELOMA
     Dosage: DOUBLE BLINDED
     Route: 048
     Dates: start: 20111031, end: 20111103
  2. BLINDED NO TREATMENT RECEIVED [Suspect]
     Indication: PLASMA CELL MYELOMA
     Dosage: DOUBLE BLINDED
     Route: 048
     Dates: start: 20111031, end: 20111103
  3. BLINDED PLACEBO [Suspect]
     Indication: PLASMA CELL MYELOMA
     Dosage: DOUBLE BLINDED
     Route: 048
     Dates: start: 20111031, end: 20111103
  4. VELCADE [Suspect]
     Indication: PLASMA CELL MYELOMA
     Dosage: DOUBLE BLINDED
     Route: 048
     Dates: start: 20111031, end: 20111103
  5. FORTECORTIN [Suspect]
     Dosage: DOUBLE BLINDED
     Route: 048
     Dates: start: 20111121, end: 20111124
  6. PANOBINOSTAT HYDRATE [Suspect]
     Dosage: DOUBLE BLINDED
     Route: 048
     Dates: start: 20111121, end: 20111124
  7. BLINDED NO TREATMENT RECEIVED [Suspect]
     Dosage: DOUBLE BLINDED
     Route: 048
     Dates: start: 20111121, end: 20111124
  8. BLINDED PLACEBO [Suspect]
     Dosage: DOUBLE BLINDED
     Route: 048
     Dates: start: 20111121, end: 20111124
  9. VELCADE [Suspect]
     Dosage: DOUBLE BLINDED
     Route: 048
     Dates: start: 20111121, end: 20111124
  10. VELCADE [Suspect]
     Indication: PLASMA CELL MYELOMA
     Dosage: 2.3 MG, UNK
     Dates: start: 20111031, end: 20111124
  11. FORTECORTIN [Suspect]
     Indication: PLASMA CELL MYELOMA
     Dosage: 20 MG, UNK
     Dates: start: 20111031, end: 20111124
  12. FORTECORTIN [Suspect]
     Indication: PLASMA CELL MYELOMA
     Dosage: DOUBLE BLINDED
     Route: 048
     Dates: start: 20111031, end: 20111103

REACTIONS (3)
  - Hypotension [Recovered/Resolved]
  - Hyponatraemia [Recovered/Resolved]
  - Vomiting [Recovered/Resolved]
